FAERS Safety Report 16389105 (Version 1)
Quarter: 2019Q3

REPORT INFORMATION
  Report Type: Spontaneous
  Country: US (occurrence: US)
  Receive Date: 20190603
  Receipt Date: 20190603
  Transmission Date: 20191004
  Serious: Yes (Other)
  Sender: FDA-Public Use
  Company Number: None

PATIENT
  Age: 73 Year
  Sex: Male
  Weight: 106.59 kg

DRUGS (2)
  1. CT SCANNER ` [Suspect]
     Active Substance: DEVICE
  2. ISOVUE 370 [Suspect]
     Active Substance: IOPAMIDOL

REACTIONS (5)
  - Pyrexia [None]
  - Influenza like illness [None]
  - Dysuria [None]
  - Heart rate increased [None]
  - Arthralgia [None]

NARRATIVE: CASE EVENT DATE: 20190603
